FAERS Safety Report 6750567-3 (Version None)
Quarter: 2010Q2

REPORT INFORMATION
  Report Type: 
  Country: None (occurrence: None)
  Receive Date: 20100601
  Receipt Date: 20100525
  Transmission Date: 20101027
  Serious: Yes (Hospitalization)
  Sender: FDA-Public Use
  Company Number: US-RB-004144-10

PATIENT
  Age: 39 Year
  Sex: Male

DRUGS (1)
  1. SUBOXONE [Suspect]
     Indication: DRUG USE FOR UNKNOWN INDICATION
     Dosage: DOSING DETAILS UNKNOWN
     Route: 065

REACTIONS (8)
  - ABDOMINAL PAIN UPPER [None]
  - DYSPNOEA [None]
  - NAUSEA [None]
  - PAIN [None]
  - PULMONARY EMBOLISM [None]
  - TOOTH EROSION [None]
  - TOOTHACHE [None]
  - VOMITING [None]
